FAERS Safety Report 5299111-0 (Version None)
Quarter: 2007Q2

REPORT INFORMATION
  Report Type: 
  Country: None (occurrence: None)
  Receive Date: 20070417
  Receipt Date: 20070412
  Transmission Date: 20071010
  Serious: Yes (Other)
  Sender: FDA-Public Use
  Company Number: BW-GLAXOSMITHKLINE-B0466419A

PATIENT
  Age: 0 Year
  Sex: Male

DRUGS (5)
  1. COMBIVIR [Suspect]
     Indication: ANTIVIRAL PROPHYLAXIS
     Dates: start: 20070315
  2. KALETRA [Suspect]
     Indication: ANTIVIRAL PROPHYLAXIS
     Dates: start: 20070315
  3. ZIDOVUDINE [Suspect]
     Indication: ANTIVIRAL PROPHYLAXIS
     Dates: start: 20070321
  4. ZIDOVUDINE [Suspect]
     Dosage: 4MGK TWICE PER DAY
     Route: 048
     Dates: start: 20070321
  5. NEVIRAPINE [Suspect]
     Indication: ANTIVIRAL PROPHYLAXIS
     Dosage: 6MG SINGLE DOSE
     Route: 048
     Dates: start: 20070321

REACTIONS (3)
  - CYANOSIS [None]
  - GRUNTING [None]
  - RESPIRATORY DISTRESS [None]
